FAERS Safety Report 14934978 (Version 1)
Quarter: 2018Q2

REPORT INFORMATION
  Report Type: Spontaneous
  Country: US (occurrence: US)
  Receive Date: 20180524
  Receipt Date: 20180524
  Transmission Date: 20180711
  Serious: Yes (Other)
  Sender: FDA-Public Use
  Company Number: US-AKORN PHARMACEUTICALS-2018AKN00645

PATIENT
  Age: 22 Year
  Sex: Male
  Weight: 62.13 kg

DRUGS (4)
  1. MYORISAN [Suspect]
     Active Substance: ISOTRETINOIN
     Indication: ACNE
     Dosage: 40 MG, 1X/DAY
     Route: 048
     Dates: start: 201804, end: 201805
  2. ZENATANE [Suspect]
     Active Substance: ISOTRETINOIN
     Indication: ACNE
     Dosage: UNK
     Dates: start: 201612, end: 2017
  3. WHEY PROTEIN [Concomitant]
     Active Substance: WHEY
  4. MYORISAN [Suspect]
     Active Substance: ISOTRETINOIN
     Indication: ACNE
     Dosage: UNK
     Route: 048
     Dates: end: 201709

REACTIONS (28)
  - Fear [Unknown]
  - Decreased appetite [Recovered/Resolved]
  - Decreased interest [Not Recovered/Not Resolved]
  - Chapped lips [Recovering/Resolving]
  - Hypokinesia [Not Recovered/Not Resolved]
  - Rash [Recovered/Resolved]
  - Anxiety [Recovering/Resolving]
  - Epistaxis [Recovered/Resolved]
  - Heart rate increased [Unknown]
  - Weight decreased [Unknown]
  - Hair growth abnormal [Not Recovered/Not Resolved]
  - Arthralgia [Not Recovered/Not Resolved]
  - Asthenia [Not Recovered/Not Resolved]
  - Conjunctivitis [Recovered/Resolved]
  - Synovial disorder [Recovering/Resolving]
  - Nasal dryness [Unknown]
  - Abnormal dreams [Recovering/Resolving]
  - Musculoskeletal stiffness [Not Recovered/Not Resolved]
  - Unevaluable event [Not Recovered/Not Resolved]
  - Poor quality sleep [Not Recovered/Not Resolved]
  - Fatigue [Not Recovered/Not Resolved]
  - Dry skin [Unknown]
  - Insomnia [Recovered/Resolved]
  - Off label use [Recovered/Resolved]
  - Depression [Recovering/Resolving]
  - Rectal haemorrhage [Unknown]
  - Erectile dysfunction [Not Recovered/Not Resolved]
  - Headache [Recovered/Resolved]

NARRATIVE: CASE EVENT DATE: 2017
